FAERS Safety Report 8503607-5 (Version None)
Quarter: 2012Q3

REPORT INFORMATION
  Report Type: 
  Country: None (occurrence: None)
  Receive Date: 20120711
  Receipt Date: 20120516
  Transmission Date: 20120928
  Serious: No
  Sender: FDA-Public Use
  Company Number: US-BAYER-2012-050830

PATIENT

DRUGS (6)
  1. ACETAMINOPHEN [Concomitant]
  2. IBUPROFEN (ADVIL) [Concomitant]
  3. ALEVE (CAPLET) [Suspect]
     Indication: ARTHRITIS
     Dosage: UNK
     Route: 048
  4. CELEBREX [Concomitant]
  5. NEURONTIN [Concomitant]
  6. GABAPENTIN [Concomitant]

REACTIONS (1)
  - ARTHRITIS [None]
